FAERS Safety Report 9188218 (Version 3)
Quarter: 2013Q3

REPORT INFORMATION
  Report Type: Report from Study
  Country: IT (occurrence: IT)
  Receive Date: 20130325
  Receipt Date: 20130708
  Transmission Date: 20140515
  Serious: Yes (Death, Hospitalization)
  Sender: FDA-Public Use
  Company Number: IT-TEVA-374678USA

PATIENT
  Age: 72 Year
  Sex: Female
  Weight: 56 kg

DRUGS (8)
  1. BENDAMUSTINE [Suspect]
     Indication: PLASMA CELL MYELOMA
     Dosage: REGIMEN #1
     Route: 042
     Dates: start: 20121116
  2. BENDAMUSTINE [Suspect]
     Dosage: REGIMEN #2
     Route: 042
     Dates: start: 20121117
  3. LENALIDOMIDE [Suspect]
     Indication: PLASMA CELL MYELOMA
     Dosage: UID/QD
     Dates: start: 20121116
  4. LENALIDOMIDE [Suspect]
     Dates: start: 20121117, end: 20121123
  5. LOBIVON [Concomitant]
  6. LANSOPRAZOLE [Concomitant]
     Dates: start: 20121123
  7. ZOPRANOL [Concomitant]
  8. LEVOXACIN [Concomitant]
     Dates: start: 20130108

REACTIONS (2)
  - Disease progression [Fatal]
  - Renal failure [Recovering/Resolving]
